FAERS Safety Report 7081042-7 (Version None)
Quarter: 2010Q4

REPORT INFORMATION
  Report Type: 
  Country: None (occurrence: None)
  Receive Date: 20101103
  Receipt Date: 20101102
  Transmission Date: 20110411
  Serious: Yes (Life-Threatening, Hospitalization)
  Sender: FDA-Public Use
  Company Number: US-ROXANE LABORATORIES, INC.-2010-RO-01140RO

PATIENT
  Sex: Female

DRUGS (14)
  1. METHADONE [Suspect]
     Indication: BACK PAIN
     Dosage: 30 MG
     Route: 048
     Dates: start: 19920101
  2. BENZODIAZEPINE [Suspect]
  3. BLINDED IMP [Suspect]
     Dates: start: 20100126, end: 20100530
  4. TIZANIDINE HCL [Concomitant]
     Indication: BACK PAIN
     Dosage: 12 MG
     Route: 048
     Dates: start: 19920101
  5. MAGNESIUM [Concomitant]
     Indication: SUPPLEMENTATION THERAPY
     Dosage: 250 MG
     Route: 048
     Dates: start: 20080101
  6. PULMICORT [Concomitant]
     Indication: CHRONIC OBSTRUCTIVE PULMONARY DISEASE
     Dosage: 720 MCG
     Route: 055
     Dates: start: 20100109
  7. ZANAFLEX [Concomitant]
     Indication: BACK PAIN
     Route: 048
     Dates: start: 19920101
  8. COUMADIN [Concomitant]
     Dosage: 2.5 MG
  9. ASPIRIN [Concomitant]
     Dosage: 81 MG
  10. CYNOCOBALAMIN/FA/PYRIDOXINE [Concomitant]
     Route: 048
  11. XOPENEX HFA [Concomitant]
     Dosage: 45 MCG
  12. SEROQUEL [Concomitant]
     Dosage: 25 MG
  13. TOPAMAX [Concomitant]
     Dosage: 25 MG
  14. VALPROIC ACID [Concomitant]
     Dosage: 500 MG

REACTIONS (11)
  - CHEST DISCOMFORT [None]
  - CHEST PAIN [None]
  - HEADACHE [None]
  - INCREASED TENDENCY TO BRUISE [None]
  - MULTIPLE DRUG OVERDOSE [None]
  - PAIN IN EXTREMITY [None]
  - PULMONARY EMBOLISM [None]
  - RESPIRATORY FAILURE [None]
  - SYNCOPE [None]
  - TREMOR [None]
  - WHEEZING [None]
